FAERS Safety Report 13954954 (Version 1)
Quarter: 2017Q3

REPORT INFORMATION
  Report Type: Spontaneous
  Country: US (occurrence: US)
  Receive Date: 20170911
  Receipt Date: 20170911
  Transmission Date: 20171128
  Serious: No
  Sender: FDA-Public Use
  Company Number: None

PATIENT

DRUGS (1)
  1. MANNITOL. [Suspect]
     Active Substance: MANNITOL

REACTIONS (2)
  - Drug dose omission [None]
  - Product deposit [None]

NARRATIVE: CASE EVENT DATE: 20170910
